FAERS Safety Report 4402152-6 (Version None)
Quarter: 2004Q3

REPORT INFORMATION
  Report Type: 
  Country: None (occurrence: None)
  Receive Date: 20040715
  Receipt Date: 20040709
  Transmission Date: 20050211
  Serious: Yes (Other)
  Sender: FDA-Public Use
  Company Number: HQWYE014713JUL04

PATIENT
  Sex: Female

DRUGS (1)
  1. ALESSE [Suspect]
     Dosage: ORAL
     Route: 048

REACTIONS (1)
  - ADRENAL INSUFFICIENCY [None]
